FAERS Safety Report 9102522 (Version 1)
Quarter: 2013Q1

REPORT INFORMATION
  Report Type: Report from Study
  Country: US (occurrence: US)
  Receive Date: 20130218
  Receipt Date: 20130218
  Transmission Date: 20140127
  Serious: Yes (Death)
  Sender: FDA-Public Use
  Company Number: US-ABBOTT-13P-163-1051067-00

PATIENT
  Sex: Male

DRUGS (1)
  1. HUMIRA [Suspect]
     Indication: ECZEMA
     Dates: start: 2011

REACTIONS (2)
  - Pancreatic carcinoma [Fatal]
  - Off label use [Not Recovered/Not Resolved]
